FAERS Safety Report 8552746-1 (Version None)
Quarter: 2012Q3

REPORT INFORMATION
  Report Type: 
  Country: None (occurrence: None)
  Receive Date: 20120731
  Receipt Date: 20120727
  Transmission Date: 20120928
  Serious: No
  Sender: FDA-Public Use
  Company Number: US-PFIZER INC-2012182923

PATIENT
  Sex: Female
  Weight: 59 kg

DRUGS (4)
  1. KLONOPIN [Concomitant]
     Indication: SOMNOLENCE
     Dosage: UNK
  2. LYRICA [Suspect]
     Indication: MUSCULOSKELETAL PAIN
  3. LYRICA [Suspect]
     Indication: PAIN
     Dosage: 75 MG, 2X/DAY
     Route: 048
     Dates: start: 20120726
  4. PAXIL [Concomitant]
     Indication: DEPRESSION
     Dosage: UNK

REACTIONS (1)
  - SOMNOLENCE [None]
